FAERS Safety Report 6718680-4 (Version None)
Quarter: 2010Q2

REPORT INFORMATION
  Report Type: 
  Country: None (occurrence: None)
  Receive Date: 20100506
  Receipt Date: 20100426
  Transmission Date: 20101027
  Serious: No
  Sender: FDA-Public Use
  Company Number: 98862

PATIENT
  Age: 18 Year
  Sex: Male
  Weight: 79.3795 kg

DRUGS (1)
  1. DAUNORUBICIN HCL [Suspect]
     Indication: ACUTE LYMPHOCYTIC LEUKAEMIA
     Dates: start: 20100421

REACTIONS (2)
  - EXPIRED DRUG ADMINISTERED [None]
  - MEDICATION ERROR [None]
